FAERS Safety Report 12313356 (Version 2)
Quarter: 2016Q2

REPORT INFORMATION
  Report Type: Spontaneous
  Country: US (occurrence: US)
  Receive Date: 20160428
  Receipt Date: 20160531
  Transmission Date: 20160815
  Serious: Yes (Other)
  Sender: FDA-Public Use
  Company Number: US-PFIZER INC-2016224197

PATIENT
  Age: 78 Year
  Sex: Female

DRUGS (2)
  1. BONIVA [Suspect]
     Active Substance: IBANDRONATE SODIUM
     Indication: OSTEOPOROSIS
     Dosage: UNK
     Route: 048
  2. SUTENT [Suspect]
     Active Substance: SUNITINIB MALATE
     Dosage: UNK

REACTIONS (1)
  - Osteonecrosis of jaw [Recovered/Resolved]
